FAERS Safety Report 8567548-X (Version None)
Quarter: 2012Q3

REPORT INFORMATION
  Report Type: 
  Country: None (occurrence: None)
  Receive Date: 20120803
  Receipt Date: 20110920
  Transmission Date: 20120928
  Serious: No
  Sender: FDA-Public Use
  Company Number: US-ABBOTT-09P-163-0591483-00

PATIENT
  Sex: Male
  Weight: 92.162 kg

DRUGS (18)
  1. NIASPAN [Suspect]
     Indication: BLOOD CHOLESTEROL INCREASED
     Route: 048
     Dates: start: 19990101
  2. FISH OILS [Concomitant]
     Indication: PRODUCT USED FOR UNKNOWN INDICATION
  3. POTASSIUM [Concomitant]
     Indication: ELECTROLYTE SUBSTITUTION THERAPY
  4. INSPRA [Concomitant]
     Indication: PRODUCT USED FOR UNKNOWN INDICATION
  5. ASPIRIN [Concomitant]
     Indication: PROPHYLAXIS
  6. IMDUR [Concomitant]
     Indication: HYPERTENSION
  7. M.V.I. [Concomitant]
     Indication: PRODUCT USED FOR UNKNOWN INDICATION
  8. ASPIRIN [Concomitant]
     Indication: PRODUCT USED FOR UNKNOWN INDICATION
  9. NIASPAN [Suspect]
     Indication: BLOOD TRIGLYCERIDES INCREASED
     Dates: start: 19980101, end: 19990101
  10. ERY-TABS [Concomitant]
     Indication: HIDRADENITIS
  11. JANUMET [Concomitant]
     Indication: DIABETES MELLITUS
     Dates: start: 20100401
  12. NORVASC [Concomitant]
     Indication: HYPERTENSION
  13. ZETIA [Concomitant]
     Indication: BLOOD CHOLESTEROL INCREASED
  14. SYNTHROID [Concomitant]
     Indication: HYPOTHYROIDISM
  15. METOPROLOL TARTRATE [Concomitant]
     Indication: HYPERTENSION
  16. LASIX [Concomitant]
     Indication: FLUID RETENTION
  17. PRILOSEC [Concomitant]
     Indication: GASTROOESOPHAGEAL REFLUX DISEASE
  18. LIPITOR [Concomitant]
     Indication: BLOOD CHOLESTEROL INCREASED

REACTIONS (8)
  - GLYCOSYLATED HAEMOGLOBIN INCREASED [None]
  - PARAESTHESIA [None]
  - PAIN [None]
  - FLUSHING [None]
  - HYPERHIDROSIS [None]
  - BLOOD GLUCOSE INCREASED [None]
  - NIGHT SWEATS [None]
  - INAPPROPRIATE SCHEDULE OF DRUG ADMINISTRATION [None]
